FAERS Safety Report 8000185-4 (Version None)
Quarter: 2011Q4

REPORT INFORMATION
  Report Type: 
  Country: None (occurrence: None)
  Receive Date: 20111222
  Receipt Date: 20111212
  Transmission Date: 20120403
  Serious: Yes (Other)
  Sender: FDA-Public Use
  Company Number: US-ELI_LILLY_AND_COMPANY-US201112004606

PATIENT
  Age: 52 Year
  Sex: Female

DRUGS (5)
  1. GOLD BOND [Concomitant]
  2. SINGULAIR [Concomitant]
  3. CYMBALTA [Suspect]
     Indication: DEPRESSION
     Dosage: 30 MG, QD
  4. CYMBALTA [Suspect]
     Dosage: 60 MG, QD
  5. CYMBALTA [Suspect]
     Dosage: 60 MG, QD

REACTIONS (2)
  - SWOLLEN TONGUE [None]
  - RASH GENERALISED [None]
